FAERS Safety Report 8383384-1 (Version None)
Quarter: 2012Q2

REPORT INFORMATION
  Report Type: 
  Country: None (occurrence: None)
  Receive Date: 20120516
  Receipt Date: 20120506
  Transmission Date: 20120825
  Serious: Yes (Hospitalization, Other)
  Sender: FDA-Public Use
  Company Number: PIR#CC400140066

PATIENT
  Age: 60 Year
  Sex: Female

DRUGS (1)
  1. CEFOXITIN [Suspect]

REACTIONS (8)
  - DEPRESSION [None]
  - CATATONIA [None]
  - BLOOD UREA INCREASED [None]
  - BLOOD CREATINE INCREASED [None]
  - TREMOR [None]
  - DISTURBANCE IN ATTENTION [None]
  - MYOCLONUS [None]
  - TACHYCARDIA [None]
